FAERS Safety Report 14744552 (Version 1)
Quarter: 2018Q2

REPORT INFORMATION
  Report Type: Spontaneous
  Country: US (occurrence: US)
  Receive Date: 20180411
  Receipt Date: 20180411
  Transmission Date: 20180711
  Serious: Yes (Other)
  Sender: FDA-Public Use
  Company Number: US-CIPLA LTD.-2018US15065

PATIENT

DRUGS (5)
  1. ERLOTINIB [Suspect]
     Active Substance: ERLOTINIB
     Indication: NON-SMALL CELL LUNG CANCER
     Dosage: 150 MG, PER DAY
     Route: 048
  2. SULFAMETHOXAZOLE/TRIMETHOPRIM [Suspect]
     Active Substance: SULFAMETHOXAZOLE\TRIMETHOPRIM
     Indication: DERMATITIS ACNEIFORM
     Dosage: UNK
     Route: 065
  3. CARBOPLATIN. [Suspect]
     Active Substance: CARBOPLATIN
     Indication: NON-SMALL CELL LUNG CANCER
     Dosage: UNK, 4 CYCLES
     Route: 065
  4. DOCETAXEL. [Suspect]
     Active Substance: DOCETAXEL
     Indication: NON-SMALL CELL LUNG CANCER
     Dosage: UNK, 4 CYCLES
     Route: 065
  5. ERLOTINIB [Suspect]
     Active Substance: ERLOTINIB
     Dosage: 100 MG, QD
     Route: 048

REACTIONS (6)
  - Lung adenocarcinoma [Unknown]
  - Paronychia [Unknown]
  - Klebsiella infection [Unknown]
  - Rash pustular [Recovered/Resolved]
  - Malignant neoplasm progression [Unknown]
  - Xerosis [Unknown]
